FAERS Safety Report 9321300 (Version 2)
Quarter: 2013Q2

REPORT INFORMATION
  Report Type: Spontaneous
  Country: JP (occurrence: JP)
  Receive Date: 20130531
  Receipt Date: 20130619
  Transmission Date: 20140414
  Serious: Yes (Hospitalization, Other)
  Sender: FDA-Public Use
  Company Number: JP-B.I. PHARMACEUTICALS,INC./RIDGEFIELD-2013-BI-14843NB

PATIENT
  Age: 90 Year
  Sex: Female

DRUGS (4)
  1. PRAZAXA [Suspect]
     Indication: ATRIAL FIBRILLATION
     Dosage: 220 MG
     Route: 048
     Dates: start: 20110423
  2. PRAZAXA [Suspect]
     Route: 048
  3. METHYCOBAL [Suspect]
     Route: 048
  4. NEXIUM [Suspect]
     Dosage: 10 MG
     Route: 048

REACTIONS (4)
  - Femur fracture [Recovered/Resolved]
  - Cerebral infarction [Unknown]
  - Dysphagia [Unknown]
  - Fall [Unknown]
